FAERS Safety Report 16321651 (Version 1)
Quarter: 2019Q2

REPORT INFORMATION
  Report Type: Spontaneous
  Country: LU (occurrence: LU)
  Receive Date: 20190516
  Receipt Date: 20190516
  Transmission Date: 20190711
  Serious: Yes (Other)
  Sender: FDA-Public Use
  Company Number: LU-TEVA-2019-LU-1050725

PATIENT
  Age: 14 Year
  Sex: Female
  Weight: 39 kg

DRUGS (5)
  1. ZOPHREN [Concomitant]
     Active Substance: ONDANSETRON
  2. EPOSIN 20 MG/ML, SOLUTION ? DILUER POUR PERFUSION (IV) [Suspect]
     Active Substance: ETOPOSIDE
     Indication: HODGKIN^S DISEASE
     Dosage: 164 MILLIGRAM DAILY; 125 MG / M2 THE J1 TO J5
     Route: 041
     Dates: start: 20190325, end: 20190329
  3. DOXORUBICINE [Concomitant]
     Active Substance: DOXORUBICIN
  4. VINCRISTINE (SULFATE DE) [Concomitant]
     Active Substance: VINCRISTINE SULFATE
  5. LITICAN [Concomitant]
     Active Substance: ALIZAPRIDE HYDROCHLORIDE

REACTIONS (2)
  - Infusion related reaction [Recovered/Resolved]
  - Malaise [Recovered/Resolved]

NARRATIVE: CASE EVENT DATE: 20190327
